FAERS Safety Report 19962059 (Version 2)
Quarter: 2021Q4

REPORT INFORMATION
  Report Type: Spontaneous
  Country: US (occurrence: US)
  Receive Date: 20211018
  Receipt Date: 20211027
  Transmission Date: 20220303
  Serious: Yes (Hospitalization, Other)
  Sender: FDA-Public Use
  Company Number: US-APOTEX-2021AP044229

PATIENT
  Age: 22 Year
  Sex: Male

DRUGS (5)
  1. ACETAMINOPHEN [Suspect]
     Active Substance: ACETAMINOPHEN
     Indication: Product used for unknown indication
     Dosage: 5 DOSAGE FORM
     Route: 048
  2. ELEXACAFTOR [Concomitant]
     Active Substance: ELEXACAFTOR
     Indication: Pancreatic failure
     Dosage: UNK
     Route: 065
  3. TEZACAFTOR [Concomitant]
     Active Substance: TEZACAFTOR
     Indication: Pancreatic failure
     Dosage: UNK
     Route: 065
  4. IVACAFTOR [Concomitant]
     Active Substance: IVACAFTOR
     Indication: Pancreatic failure
     Dosage: UNK
     Route: 065
  5. UNSPECIFIED INGREDIENT [Concomitant]
     Active Substance: UNSPECIFIED INGREDIENT
     Indication: Pancreatic failure
     Dosage: UNK
     Route: 065

REACTIONS (3)
  - Acute hepatic failure [Recovered/Resolved]
  - Hepatic encephalopathy [Recovered/Resolved]
  - Incorrect dose administered [Unknown]
